FAERS Safety Report 22616596 (Version 1)
Quarter: 2023Q2

REPORT INFORMATION
  Report Type: Spontaneous
  Country: US (occurrence: US)
  Receive Date: 20230619
  Receipt Date: 20230619
  Transmission Date: 20230721
  Serious: Yes (Hospitalization)
  Sender: FDA-Public Use
  Company Number: US-TEVA-2023-US-2897775

PATIENT
  Age: 5 Decade
  Sex: Female

DRUGS (1)
  1. UZEDY [Suspect]
     Active Substance: RISPERIDONE
     Indication: Schizophrenia
     Route: 058
     Dates: start: 20230608

REACTIONS (2)
  - Negative symptoms in schizophrenia [Unknown]
  - Depressive symptom [Unknown]

NARRATIVE: CASE EVENT DATE: 20230609
